FAERS Safety Report 4558208-0 (Version None)
Quarter: 2005Q1

REPORT INFORMATION
  Report Type: 
  Country: None (occurrence: None)
  Receive Date: 20050103
  Receipt Date: 20041014
  Transmission Date: 20050727
  Serious: Yes (Other)
  Sender: FDA-Public Use
  Company Number: 2004UW21443

PATIENT
  Age: 55 Year
  Sex: Female
  Weight: 80.739 kg

DRUGS (7)
  1. CRESTOR [Suspect]
     Indication: BLOOD CHOLESTEROL INCREASED
     Dosage: 10 MG PO
     Route: 048
     Dates: start: 20040901
  2. HYZAAR [Concomitant]
  3. LABETALOL [Concomitant]
  4. FLEXERIL [Concomitant]
  5. VICODIN [Concomitant]
  6. ACIPHEX [Concomitant]
  7. CLARINEX [Concomitant]

REACTIONS (1)
  - CATARACT [None]
